FAERS Safety Report 25812304 (Version 1)
Quarter: 2025Q3

REPORT INFORMATION
  Report Type: Spontaneous
  Country: US (occurrence: None)
  Receive Date: 20250916
  Receipt Date: 20250916
  Transmission Date: 20251020
  Serious: Yes (Life-Threatening, Hospitalization, Other)
  Sender: FDA-CTU
  Company Number: None

PATIENT
  Sex: Male

DRUGS (8)
  1. LAMICTAL [Suspect]
     Active Substance: LAMOTRIGINE
     Indication: Depression
     Dates: start: 20250218, end: 20250314
  2. LAMICTAL [Suspect]
     Active Substance: LAMOTRIGINE
     Indication: Anger
  3. WINE [Suspect]
     Active Substance: WINE
  4. MEDROL [Concomitant]
     Active Substance: METHYLPREDNISOLONE
  5. METOPROLOL [Concomitant]
     Active Substance: METOPROLOL
  6. PROPRANOLOL [Concomitant]
     Active Substance: PROPRANOLOL HYDROCHLORIDE
  7. BENADRYL [Concomitant]
     Active Substance: DIPHENHYDRAMINE HYDROCHLORIDE
  8. ZOLOFT [Concomitant]
     Active Substance: SERTRALINE HYDROCHLORIDE

REACTIONS (1)
  - Stevens-Johnson syndrome [None]
